FAERS Safety Report 15977660 (Version 2)
Quarter: 2019Q1

REPORT INFORMATION
  Report Type: Spontaneous
  Country: PL (occurrence: PL)
  Receive Date: 20190218
  Receipt Date: 20190326
  Transmission Date: 20190418
  Serious: Yes (Hospitalization)
  Sender: FDA-Public Use
  Company Number: PHHY2019PL036451

PATIENT
  Age: 71 Year
  Sex: Male

DRUGS (1)
  1. METFORMIN [Suspect]
     Active Substance: METFORMIN HYDROCHLORIDE
     Indication: TYPE 2 DIABETES MELLITUS
     Dosage: 850 MG, BID
     Route: 065

REACTIONS (6)
  - Cardiac disorder [Unknown]
  - Muscular weakness [Unknown]
  - Arrhythmia [Unknown]
  - Abdominal pain upper [Unknown]
  - Hyperkalaemia [Unknown]
  - Renal failure [Unknown]
